FAERS Safety Report 18648836 (Version 1)
Quarter: 2020Q4

REPORT INFORMATION
  Report Type: Spontaneous
  Country: US (occurrence: US)
  Receive Date: 20201222
  Receipt Date: 20201222
  Transmission Date: 20210114
  Serious: Yes (Hospitalization, Other)
  Sender: FDA-Public Use
  Company Number: US-PFIZER INC-2020500346

PATIENT
  Age: 76 Year
  Sex: Male
  Weight: 73.48 kg

DRUGS (2)
  1. VYNDAQEL [Suspect]
     Active Substance: TAFAMIDIS MEGLUMINE
     Indication: AMYLOIDOSIS
     Dosage: 80 MG, 1X/DAY (20MG CAPSULE BY MOUTH: FOUR CAPSULES EVERY MORNING)
     Route: 048
     Dates: start: 201906, end: 202011
  2. VYNDAQEL [Suspect]
     Active Substance: TAFAMIDIS MEGLUMINE
     Dosage: 80 MG, 1X/DAY (20MG CAPSULE BY MOUTH: FOUR CAPSULES EVERY MORNING)
     Route: 048
     Dates: start: 202012

REACTIONS (8)
  - Dyspnoea [Unknown]
  - Weight decreased [Unknown]
  - Illness [Unknown]
  - Haemorrhage [Unknown]
  - COVID-19 [Unknown]
  - Thrombosis [Unknown]
  - Product dose omission issue [Unknown]
  - Taste disorder [Not Recovered/Not Resolved]

NARRATIVE: CASE EVENT DATE: 2020
